FAERS Safety Report 4567929-5 (Version None)
Quarter: 2005Q1

REPORT INFORMATION
  Report Type: 
  Country: None (occurrence: None)
  Receive Date: 20050202
  Receipt Date: 20040225
  Transmission Date: 20050727
  Serious: No
  Sender: FDA-Public Use
  Company Number: US-GLAXOSMITHKLINE-A0499861A

PATIENT
  Age: 52 Year
  Sex: Female

DRUGS (2)
  1. NAVELBINE [Suspect]
     Dosage: 25MGM2 VARIABLE DOSE
     Route: 042
     Dates: start: 20031126
  2. HERCEPTIN [Concomitant]

REACTIONS (1)
  - MUCOSAL INFLAMMATION [None]
